FAERS Safety Report 15882854 (Version 3)
Quarter: 2019Q1

REPORT INFORMATION
  Report Type: Report from Study
  Country: US (occurrence: US)
  Receive Date: 20190129
  Receipt Date: 20190218
  Transmission Date: 20190417
  Serious: Yes (Other)
  Sender: FDA-Public Use
  Company Number: US-TESAROUBC-2019-TSO00049-US

PATIENT
  Age: 71 Year
  Sex: Female
  Weight: 93.9 kg

DRUGS (11)
  1. LEVOTHYROXINE SODIUM. [Concomitant]
     Active Substance: LEVOTHYROXINE SODIUM
     Indication: PRODUCT USED FOR UNKNOWN INDICATION
  2. ATENOLOL. [Concomitant]
     Active Substance: ATENOLOL
     Indication: PRODUCT USED FOR UNKNOWN INDICATION
  3. RANITIDINE. [Concomitant]
     Active Substance: RANITIDINE
     Indication: PRODUCT USED FOR UNKNOWN INDICATION
  4. ZEJULA [Suspect]
     Active Substance: NIRAPARIB
     Indication: GENITAL NEOPLASM MALIGNANT FEMALE
     Dosage: 200 MG, QD IN PM WITH FOOD
     Route: 048
     Dates: start: 20190103
  5. SLO-MAG [Concomitant]
     Indication: HYPOMAGNESAEMIA
     Route: 048
  6. JANUMET [Concomitant]
     Active Substance: METFORMIN HYDROCHLORIDE\SITAGLIPTIN PHOSPHATE
     Indication: PRODUCT USED FOR UNKNOWN INDICATION
  7. TRAMADOL. [Concomitant]
     Active Substance: TRAMADOL
     Indication: PRODUCT USED FOR UNKNOWN INDICATION
  8. ZOFRAN [Concomitant]
     Active Substance: ONDANSETRON HYDROCHLORIDE
     Indication: PRODUCT USED FOR UNKNOWN INDICATION
  9. AMLODIPINE [Concomitant]
     Active Substance: AMLODIPINE BESYLATE
     Indication: PRODUCT USED FOR UNKNOWN INDICATION
  10. SIMVASTATIN. [Concomitant]
     Active Substance: SIMVASTATIN
     Indication: PRODUCT USED FOR UNKNOWN INDICATION
  11. TYLENOL [Concomitant]
     Active Substance: ACETAMINOPHEN
     Indication: PRODUCT USED FOR UNKNOWN INDICATION

REACTIONS (10)
  - Arthropathy [Unknown]
  - Product use in unapproved indication [Unknown]
  - Constipation [Not Recovered/Not Resolved]
  - Neuropathy peripheral [Recovered/Resolved]
  - Myalgia [Unknown]
  - Paraesthesia [Unknown]
  - Neoplasm progression [Unknown]
  - Carbohydrate antigen 125 increased [Unknown]
  - Pain in extremity [Unknown]
  - Arthralgia [Unknown]

NARRATIVE: CASE EVENT DATE: 20170424
